FAERS Safety Report 7597119 (Version 5)
Quarter: 2012Q4

REPORT INFORMATION
  Report Type: 
  Country: TR (occurrence: TR)
  Receive Date: 20100920
  Receipt Date: 20121005
  Transmission Date: 20130627
  Serious: Yes (Hospitalization)
  Sender: FDA-Public Use
  Company Number: TR-ABBOTT-10P-161-0669924-00

PATIENT
  Age: 26 Year
  Sex: Male

DRUGS (10)
  1. VALPROIC ACID [Suspect]
     Indication: BIPOLAR DISORDER
  2. VALPROIC ACID [Suspect]
  3. QUETIAPINE [Suspect]
     Indication: BIPOLAR DISORDER
  4. QUETIAPINE [Suspect]
  5. LITHIUM [Concomitant]
     Indication: BIPOLAR DISORDER
     Dosage: 1500 mg daily
  6. LITHIUM [Concomitant]
     Indication: MANIA
  7. RISPERIDONE [Concomitant]
     Indication: BIPOLAR DISORDER
  8. RISPERIDONE [Concomitant]
     Indication: MANIA
  9. OLANZAPINE [Concomitant]
     Indication: BIPOLAR DISORDER
  10. OLANZAPINE [Concomitant]
     Indication: MANIA
     Dosage: 5 mg/day

REACTIONS (2)
  - Blood creatine phosphokinase increased [Recovered/Resolved]
  - Hepatic enzyme increased [Recovered/Resolved]
